FAERS Safety Report 13600566 (Version 1)
Quarter: 2017Q2

REPORT INFORMATION
  Report Type: Spontaneous
  Country: US (occurrence: US)
  Receive Date: 20170531
  Receipt Date: 20170531
  Transmission Date: 20170830
  Serious: Yes (Disabling)
  Sender: FDA-Public Use
  Company Number: None

PATIENT
  Age: 58 Year
  Sex: Female
  Weight: 51.75 kg

DRUGS (8)
  1. VITAMIN C [Concomitant]
     Active Substance: ASCORBIC ACID
  2. CURCAMIN [Concomitant]
  3. NATURTHROID [Concomitant]
  4. SPIRONALACTONE [Concomitant]
     Active Substance: SPIRONOLACTONE
  5. HORMONES [Concomitant]
     Active Substance: UNSPECIFIED INGREDIENT
  6. CIPRO [Suspect]
     Active Substance: CIPROFLOXACIN HYDROCHLORIDE
     Indication: URINARY TRACT INFECTION
     Route: 048
     Dates: start: 20170321, end: 20170324
  7. VITAMIN D [Concomitant]
     Active Substance: CHOLECALCIFEROL
  8. VITAMIN K2 [Concomitant]
     Active Substance: MENAQUINONE 6

REACTIONS (3)
  - Tinnitus [None]
  - Ear discomfort [None]
  - Deafness [None]

NARRATIVE: CASE EVENT DATE: 20170327
